FAERS Safety Report 18111346 (Version 2)
Quarter: 2020Q3

REPORT INFORMATION
  Report Type: Spontaneous
  Country: US (occurrence: US)
  Receive Date: 20200804
  Receipt Date: 20200814
  Transmission Date: 20201103
  Serious: Yes (Other)
  Sender: FDA-Public Use
  Company Number: US-TEVA-2020-US-1809993

PATIENT
  Age: 47 Year
  Sex: Male

DRUGS (6)
  1. QUETIAPINE. [Suspect]
     Active Substance: QUETIAPINE
     Indication: BIPOLAR II DISORDER
     Dosage: 300 MILLIGRAM DAILY; EVERY NIGHT AT BEDTIME
     Route: 065
  2. DIVALPROEX SODIUM. [Suspect]
     Active Substance: DIVALPROEX SODIUM
     Indication: BIPOLAR II DISORDER
     Dosage: 2000 MILLIGRAM DAILY; EVERY NIGHT AT BEDTIME
     Route: 065
  3. TOPIRAMATE. [Suspect]
     Active Substance: TOPIRAMATE
     Indication: SOMNAMBULISM
     Dosage: 25 MILLIGRAM DAILY; EVERY NIGHT AT BEDTIME, WHICH WAS FURTHER TITRATED TO 50MG EVERY NIGHT AT BEDTIM
     Route: 065
  4. AMFETAMINE/DEXAMFETAMINE [Suspect]
     Active Substance: AMPHETAMINE SULFATE\DEXTROAMPHETAMINE
     Indication: BIPOLAR II DISORDER
     Dosage: 60 MILLIGRAM DAILY; THREE TIMES DAILY
     Route: 065
  5. TOPIRAMATE. [Suspect]
     Active Substance: TOPIRAMATE
     Indication: SLEEP-RELATED EATING DISORDER
     Dosage: EVERY NIGHT AT BEDTIME
     Route: 065
  6. DULOXETINE. [Suspect]
     Active Substance: DULOXETINE
     Indication: BIPOLAR II DISORDER
     Dosage: 120 MILLIGRAM DAILY;
     Route: 065

REACTIONS (7)
  - Somnambulism [Recovered/Resolved]
  - Restless legs syndrome [Recovered/Resolved]
  - Sleep-related eating disorder [Recovered/Resolved]
  - Choking [Recovered/Resolved]
  - Alopecia [Unknown]
  - Weight increased [Unknown]
  - Cognitive disorder [Unknown]
